FAERS Safety Report 16038111 (Version 2)
Quarter: 2019Q1

REPORT INFORMATION
  Report Type: Report from Study
  Country: US (occurrence: US)
  Receive Date: 20190305
  Receipt Date: 20190315
  Transmission Date: 20190418
  Serious: Yes (Hospitalization)
  Sender: FDA-Public Use
  Company Number: US-ACTELION-A-US2019-187113

PATIENT
  Age: 8 Year
  Sex: Female

DRUGS (7)
  1. SILDENAFIL. [Concomitant]
     Active Substance: SILDENAFIL
     Dosage: 20 MG, TID
     Route: 048
     Dates: start: 20180518
  2. AMOXICILLIN. [Concomitant]
     Active Substance: AMOXICILLIN
  3. CEFDINIR. [Concomitant]
     Active Substance: CEFDINIR
  4. DOK [Concomitant]
     Active Substance: DOCUSATE SODIUM
  5. PEG 3350 [Concomitant]
     Active Substance: POLYETHYLENE GLYCOL 3350
  6. TRACLEER [Suspect]
     Active Substance: BOSENTAN
     Indication: PULMONARY ARTERIAL HYPERTENSION
     Dosage: 32 MG, BID
     Route: 049
     Dates: start: 20180222
  7. MIRALAX [Concomitant]
     Active Substance: POLYETHYLENE GLYCOL 3350

REACTIONS (3)
  - Rhinorrhoea [Unknown]
  - Pyrexia [Recovered/Resolved]
  - Constipation [Recovered/Resolved]

NARRATIVE: CASE EVENT DATE: 20190217
